FAERS Safety Report 15530686 (Version 1)
Quarter: 2018Q4

REPORT INFORMATION
  Report Type: Spontaneous
  Country: CN (occurrence: CN)
  Receive Date: 20181018
  Receipt Date: 20181018
  Transmission Date: 20190205
  Serious: Yes (Hospitalization, Other)
  Sender: FDA-Public Use
  Company Number: CN-009507513-1810CHN006448

PATIENT
  Age: 45 Year
  Sex: Male
  Weight: 109 kg

DRUGS (5)
  1. BETALOC [Suspect]
     Active Substance: METOPROLOL TARTRATE
     Indication: VASCULAR STENT STENOSIS
     Dosage: 25 MG, QD
     Route: 048
     Dates: start: 20150701, end: 20180729
  2. ZOCOR [Suspect]
     Active Substance: SIMVASTATIN
     Indication: VASCULAR STENT STENOSIS
     Dosage: 20 MG, QD
     Route: 048
     Dates: start: 20180101, end: 20180728
  3. ADALAT [Suspect]
     Active Substance: NIFEDIPINE
     Indication: HYPERTENSION
     Dosage: 30 MG, QD
     Route: 048
     Dates: start: 20150701, end: 20180806
  4. PLAVIX [Suspect]
     Active Substance: CLOPIDOGREL BISULFATE
     Indication: VASCULAR STENT STENOSIS
     Dosage: 75 MG, QD
     Route: 048
     Dates: start: 20150701, end: 20180729
  5. ASPIRIN. [Suspect]
     Active Substance: ASPIRIN
     Indication: VASCULAR STENT STENOSIS
     Dosage: 100 MG, QD
     Route: 048
     Dates: start: 20150701, end: 20180729

REACTIONS (3)
  - Rhabdomyolysis [Recovering/Resolving]
  - Hepatic function abnormal [Recovering/Resolving]
  - Acute kidney injury [Recovering/Resolving]

NARRATIVE: CASE EVENT DATE: 20180729
